FAERS Safety Report 8262502-X (Version None)
Quarter: 2012Q2

REPORT INFORMATION
  Report Type: 
  Country: None (occurrence: None)
  Receive Date: 20120405
  Receipt Date: 20120402
  Transmission Date: 20120825
  Serious: Yes (Hospitalization)
  Sender: FDA-Public Use
  Company Number: BE-AMGEN-BELCT2012004976

PATIENT
  Age: 39 Year
  Sex: Female
  Weight: 75 kg

DRUGS (17)
  1. CALCIUM CARBONATE [Concomitant]
     Route: 048
     Dates: start: 20111207
  2. NOVABAN [Concomitant]
     Dosage: 5 MG, UNK
     Route: 042
     Dates: start: 20111207
  3. AUGMENTIN '125' [Concomitant]
     Route: 042
     Dates: start: 20111208, end: 20111208
  4. NEULASTA [Suspect]
     Dosage: 6 MG, Q3WK
     Route: 058
     Dates: start: 20111228
  5. SOLU-MEDROL [Concomitant]
     Dosage: 80 MG, UNK
  6. ZOLPIDEM [Concomitant]
     Dosage: 10 MG, QD
     Route: 048
     Dates: start: 20111208
  7. XGEVA [Suspect]
     Indication: BREAST CANCER
     Dosage: UNK, Q3WK
     Route: 058
     Dates: start: 20111207
  8. FLUOROURACIL [Concomitant]
     Indication: BREAST CANCER
     Dosage: 600 MG/M2, Q3WK
     Route: 042
     Dates: start: 20111207
  9. CYCLOPHOSPHAMIDE [Concomitant]
     Indication: BREAST CANCER
     Dosage: 600 MG/M2, Q3WK
     Route: 042
     Dates: start: 20111207
  10. DEXAMETHASONE [Concomitant]
     Route: 048
     Dates: start: 20111208
  11. VIT D3 [Concomitant]
     Dosage: UNK
     Route: 048
     Dates: start: 20111207
  12. EPIRUBICIN [Concomitant]
     Indication: BREAST CANCER
     Dosage: 100 MG/M2, Q3WK
     Route: 042
     Dates: start: 20111207
  13. MEDROL [Concomitant]
     Dosage: 32 MG, UNK
  14. EMEND [Concomitant]
     Dosage: UNK
     Route: 048
     Dates: start: 20111207
  15. PANTOPRAZOLE [Concomitant]
     Dosage: 90 MG, UNK
  16. LITICAN [Concomitant]
     Route: 048
     Dates: start: 20111207
  17. LEVOFLOXACIN [Concomitant]
     Dosage: 500 MG, UNK
     Route: 048
     Dates: start: 20111209, end: 20111214

REACTIONS (2)
  - PAIN OF SKIN [None]
  - MYALGIA [None]
